FAERS Safety Report 6417828-9 (Version None)
Quarter: 2009Q4

REPORT INFORMATION
  Report Type: 
  Country: None (occurrence: None)
  Receive Date: 20091028
  Receipt Date: 20091021
  Transmission Date: 20100525
  Serious: Yes (Death)
  Sender: FDA-Public Use
  Company Number: JP-GENENTECH-292691

PATIENT
  Age: 65 Year
  Sex: Male

DRUGS (1)
  1. RITUXAN [Suspect]
     Indication: EPSTEIN-BARR VIRUS ASSOCIATED LYMPHOPROLIFERATIVE DISORDER
     Dosage: UNK
     Route: 065

REACTIONS (3)
  - HEPATIC FAILURE [None]
  - HEPATITIS B SURFACE ANTIGEN POSITIVE [None]
  - HEPATITIS CHOLESTATIC [None]
